FAERS Safety Report 25073445 (Version 1)
Quarter: 2025Q1

REPORT INFORMATION
  Report Type: Spontaneous
  Country: US (occurrence: None)
  Receive Date: 20250312
  Receipt Date: 20250312
  Transmission Date: 20250409
  Serious: Yes (Other)
  Sender: FDA-CTU
  Company Number: None

PATIENT
  Age: 46 Year
  Sex: Female

DRUGS (1)
  1. DUPIXENT [Suspect]
     Active Substance: DUPILUMAB
     Dosage: OTHER FREQUENCY : WEEKLY;?
     Route: 058

REACTIONS (10)
  - Constipation [None]
  - Gastrointestinal disorder [None]
  - Anxiety [None]
  - Suicidal ideation [None]
  - Thyroid function test abnormal [None]
  - Eosinophilic oesophagitis [None]
  - Secretion discharge [None]
  - Inflammation [None]
  - Abdominal pain [None]
  - Cough [None]
